FAERS Safety Report 8621958-0 (Version None)
Quarter: 2012Q3

REPORT INFORMATION
  Report Type: 
  Country: None (occurrence: None)
  Receive Date: 20120823
  Receipt Date: 20120823
  Transmission Date: 20120928
  Serious: Yes (Other)
  Sender: FDA-Public Use
  Company Number: None

PATIENT
  Sex: Male
  Weight: 127.4608 kg

DRUGS (1)
  1. ADDERALL XR 20 [Suspect]
     Indication: ATTENTION DEFICIT/HYPERACTIVITY DISORDER
     Dosage: 200PS ONE TIME DAILY
     Dates: start: 20120810

REACTIONS (1)
  - DRUG INEFFECTIVE [None]
